FAERS Safety Report 21034203 (Version 1)
Quarter: 2022Q3

REPORT INFORMATION
  Report Type: Spontaneous
  Country: AR (occurrence: AR)
  Receive Date: 20220701
  Receipt Date: 20220701
  Transmission Date: 20221027
  Serious: Yes (Other)
  Sender: FDA-Public Use
  Company Number: AR-PFIZER INC-PV202200011396

PATIENT
  Age: 79 Year
  Sex: Female

DRUGS (1)
  1. IBRANCE [Suspect]
     Active Substance: PALBOCICLIB
     Dosage: UNK

REACTIONS (6)
  - Thrombosis [Unknown]
  - Mobility decreased [Unknown]
  - Bronchitis [Unknown]
  - Illness [Unknown]
  - Blood potassium decreased [Unknown]
  - Vein disorder [Unknown]
